FAERS Safety Report 19210696 (Version 1)
Quarter: 2021Q2

REPORT INFORMATION
  Report Type: Spontaneous
  Country: BE (occurrence: BE)
  Receive Date: 20210504
  Receipt Date: 20210504
  Transmission Date: 20210717
  Serious: Yes (Other)
  Sender: FDA-Public Use
  Company Number: BE-SUN PHARMACEUTICAL INDUSTRIES LTD-2021RR-293970

PATIENT
  Age: 26 Year
  Sex: Male

DRUGS (8)
  1. METHOTREXATE. [Suspect]
     Active Substance: METHOTREXATE
     Indication: OSTEOSARCOMA METASTATIC
     Dosage: 12 GRAM PER SQUARE METRE, ON DAY 1 AND 8
     Route: 065
  2. DOXORUBICIN [Suspect]
     Active Substance: DOXORUBICIN
     Indication: OSTEOSARCOMA
     Dosage: 25 MILLIGRAM/SQ. METER, ON DAY 1?3 EVERY 3 WEEKS
     Route: 065
  3. ETOPOSIDE PHOSPHATE [Suspect]
     Active Substance: ETOPOSIDE PHOSPHATE
     Indication: OSTEOSARCOMA METASTATIC
     Dosage: 100 MILLIGRAM/SQ. METER, ON DAY 1, 2 AND 3 EVERY 3 WEEKS
     Route: 065
     Dates: start: 201705
  4. IFOSFAMIDE. [Suspect]
     Active Substance: IFOSFAMIDE
     Indication: OSTEOSARCOMA METASTATIC
     Dosage: 9 GRAM PER SQUARE METRE, EVERY CYLE DIVIDED OVER 3 DAYS (DAY 22?24)
     Route: 065
  5. GEMCITABINE. [Suspect]
     Active Substance: GEMCITABINE
     Indication: OSTEOSARCOMA METASTATIC
     Dosage: 900 MILLIGRAM/SQ. METER, ON DAY 1 AND 8
     Route: 065
  6. CISPLATIN. [Suspect]
     Active Substance: CISPLATIN
     Indication: OSTEOSARCOMA
     Dosage: 100 MILLIGRAM/SQ. METER,ON DAY 1
     Route: 065
  7. DOCETAXEL. [Suspect]
     Active Substance: DOCETAXEL
     Indication: OSTEOSARCOMA METASTATIC
     Dosage: 100 MILLIGRAM/SQ. METER, ON DAY 8
     Route: 065
  8. CARBOPLATIN. [Suspect]
     Active Substance: CARBOPLATIN
     Indication: OSTEOSARCOMA METASTATIC
     Dosage: ON DAY 1
     Route: 065

REACTIONS (4)
  - Therapeutic product effect incomplete [Unknown]
  - Therapy partial responder [Unknown]
  - Metastatic neoplasm [Unknown]
  - Disease progression [Unknown]
